FAERS Safety Report 9192386 (Version 2)
Quarter: 2013Q2

REPORT INFORMATION
  Report Type: Spontaneous
  Country: DE (occurrence: DE)
  Receive Date: 20130327
  Receipt Date: 20130530
  Transmission Date: 20140414
  Serious: Yes (Life-Threatening, Hospitalization)
  Sender: FDA-Public Use
  Company Number: DE-ELI_LILLY_AND_COMPANY-DE201303006403

PATIENT
  Age: 44 Year
  Sex: Female

DRUGS (10)
  1. CYMBALTA [Suspect]
     Indication: FIBROMYALGIA
     Dosage: 60 MG, BID
     Route: 048
     Dates: start: 201207, end: 20130314
  2. LITHIUM [Interacting]
     Dosage: UNK UNK, UNKNOWN
     Dates: start: 20130228
  3. LITHIUM [Interacting]
     Dosage: 300 MG, BID
     Dates: start: 20130308, end: 20130314
  4. LORAZEPAM [Concomitant]
     Dosage: 2.5 MG, QD
  5. RISPERIDON [Interacting]
     Dosage: 3 MG, QD
  6. ARIPIPRAZOLE [Interacting]
     Dosage: 30 MG, QD
  7. BUPROPION [Interacting]
     Dosage: 450 MG, QD
  8. BUPROPION [Interacting]
     Dosage: 300 MG, QD
     Dates: end: 20130314
  9. PANTOPRAZOL [Concomitant]
     Dosage: 40 MG, QD
  10. BIPERIDEN [Concomitant]
     Dosage: 4 MG, QD

REACTIONS (7)
  - Serotonin syndrome [Recovered/Resolved]
  - Depression [Unknown]
  - Psychotic disorder [Unknown]
  - Post-traumatic stress disorder [Unknown]
  - Suicidal ideation [Unknown]
  - Hallucination, visual [Unknown]
  - Drug interaction [Recovered/Resolved]
